FAERS Safety Report 8948162 (Version 1)
Quarter: 2012Q4

REPORT INFORMATION
  Report Type: Spontaneous
  Country: IT (occurrence: None)
  Receive Date: 20121126
  Receipt Date: 20121126
  Transmission Date: 20130627
  Serious: Yes (Other)
  Sender: FDA-Public Use
  Company Number: 1493421

PATIENT
  Age: 77 Year

DRUGS (2)
  1. OXALIPLATIN [Suspect]
     Indication: COLON CANCER
     Route: 051
     Dates: start: 20121108, end: 20121108
  2. LEVOFOLINIC ACID [Concomitant]

REACTIONS (6)
  - Dermatitis [None]
  - Hypertensive crisis [None]
  - Erythema [None]
  - Lip oedema [None]
  - Flushing [None]
  - Urticaria [None]
